FAERS Safety Report 9904392 (Version 1)
Quarter: 2014Q1

REPORT INFORMATION
  Report Type: Spontaneous
  Country: US (occurrence: US)
  Receive Date: 20140218
  Receipt Date: 20140218
  Transmission Date: 20141002
  Serious: No
  Sender: FDA-Public Use
  Company Number: US-PFIZER INC-2014040601

PATIENT
  Age: 45 Year
  Sex: Female

DRUGS (2)
  1. SOMAVERT [Suspect]
     Indication: ACROMEGALY
     Dosage: 10 MG, DAILY
     Route: 058
  2. LEVOTHYROXINE [Concomitant]
     Dosage: 25 UG, UNK

REACTIONS (1)
  - Fat tissue increased [Unknown]
